FAERS Safety Report 14577143 (Version 1)
Quarter: 2018Q1

REPORT INFORMATION
  Report Type: Spontaneous
  Country: ES (occurrence: ES)
  Receive Date: 20180227
  Receipt Date: 20180227
  Transmission Date: 20180509
  Serious: Yes (Other)
  Sender: FDA-Public Use
  Company Number: ES-PFIZER INC-HQWYE377302DEC03

PATIENT
  Age: 52 Year
  Sex: Female

DRUGS (1)
  1. PANTECTA [Suspect]
     Active Substance: PANTOPRAZOLE SODIUM
     Indication: GASTROOESOPHAGEAL REFLUX DISEASE
     Dosage: 40 MG, 1X/DAY
     Route: 048

REACTIONS (3)
  - Gastric polyps [Unknown]
  - Gastric mucosal hypertrophy [Unknown]
  - Condition aggravated [Unknown]
